FAERS Safety Report 15536839 (Version 1)
Quarter: 2018Q4

REPORT INFORMATION
  Report Type: Spontaneous
  Country: US (occurrence: US)
  Receive Date: 20181016
  Receipt Date: 20181016
  Transmission Date: 20190205
  Serious: No
  Sender: FDA-Public Use
  Company Number: None

PATIENT
  Age: 70 Year
  Sex: Female

DRUGS (1)
  1. PROLIA [Suspect]
     Active Substance: DENOSUMAB
     Indication: OSTEOPOROSIS
     Dates: start: 201704

REACTIONS (5)
  - Pain [None]
  - Chest discomfort [None]
  - Arthralgia [None]
  - Discomfort [None]
  - Musculoskeletal pain [None]

NARRATIVE: CASE EVENT DATE: 20180416
